FAERS Safety Report 25505700 (Version 1)
Quarter: 2025Q3

REPORT INFORMATION
  Report Type: Spontaneous
  Country: US (occurrence: None)
  Receive Date: 20250702
  Receipt Date: 20250702
  Transmission Date: 20251021
  Serious: Yes (Other)
  Sender: FDA-CTU
  Company Number: None

PATIENT
  Age: 56 Year
  Sex: Female

DRUGS (1)
  1. VERZENIO [Suspect]
     Active Substance: ABEMACICLIB
     Indication: Invasive ductal breast carcinoma
     Dates: start: 20250213, end: 20250616

REACTIONS (4)
  - Diarrhoea [None]
  - Dry skin [None]
  - Gingival bleeding [None]
  - Drug ineffective [None]

NARRATIVE: CASE EVENT DATE: 20250306
